FAERS Safety Report 13551230 (Version 2)
Quarter: 2017Q2

REPORT INFORMATION
  Report Type: Spontaneous
  Country: HR (occurrence: HR)
  Receive Date: 20170516
  Receipt Date: 20170523
  Transmission Date: 20170830
  Serious: Yes (Hospitalization, Other)
  Sender: FDA-Public Use
  Company Number: HR-SA-2017SA081418

PATIENT
  Age: 76 Year
  Sex: Male

DRUGS (15)
  1. DICLOFENAC [Suspect]
     Active Substance: DICLOFENAC
     Indication: BACK PAIN
     Route: 030
  2. ROPINIROLE. [Suspect]
     Active Substance: ROPINIROLE
     Indication: PARKINSONISM
     Dosage: FOR MORE THAN ONE YEAR
     Route: 065
  3. ROPINIROLE. [Suspect]
     Active Substance: ROPINIROLE
     Indication: EXTRAPYRAMIDAL DISORDER
     Route: 065
  4. ENTACAPONE. [Suspect]
     Active Substance: ENTACAPONE
     Dosage: FOR 8 YEARS
     Route: 065
  5. ROPINIROLE. [Suspect]
     Active Substance: ROPINIROLE
     Indication: EXTRAPYRAMIDAL DISORDER
     Dosage: FOR MORE THAN ONE YEAR
     Route: 065
  6. ROPINIROLE. [Suspect]
     Active Substance: ROPINIROLE
     Indication: EXTRAPYRAMIDAL DISORDER
     Route: 065
  7. ROPINIROLE. [Suspect]
     Active Substance: ROPINIROLE
     Indication: PARKINSONISM
     Route: 065
  8. ACETYLSALICYLIC ACID [Suspect]
     Active Substance: ASPIRIN
     Dosage: FOR MORE THAN TEN YEARS
     Route: 065
  9. PERINDOPRIL ERBUMINE. [Suspect]
     Active Substance: PERINDOPRIL ERBUMINE
     Route: 065
  10. SIMVASTATIN. [Suspect]
     Active Substance: SIMVASTATIN
     Dosage: FOR MORE THAN 5 YEARS
     Route: 065
  11. AMLODIPINE BESILATE [Suspect]
     Active Substance: AMLODIPINE BESYLATE
     Route: 065
  12. LEVODOPA-CARBIDOPA [Concomitant]
     Active Substance: CARBIDOPA\LEVODOPA
     Dosage: FOR 8 YEARS
     Route: 065
  13. ROPINIROLE. [Suspect]
     Active Substance: ROPINIROLE
     Indication: PARKINSONISM
     Route: 065
  14. DICLOFENAC [Suspect]
     Active Substance: DICLOFENAC
     Indication: BACK PAIN
     Dosage: FOR MORE THAN 5 YEARS FOR OCCASIONAL BACK PAIN
     Route: 065
  15. GLIMEPIRIDE. [Suspect]
     Active Substance: GLIMEPIRIDE
     Indication: DIABETES MELLITUS
     Dosage: FOR MORE THAN 5 YEARS
     Route: 065

REACTIONS (5)
  - Lipase increased [Recovered/Resolved]
  - Amylase increased [Recovered/Resolved]
  - Pancreatitis acute [Recovered/Resolved]
  - Pancreatitis [Recovered/Resolved]
  - Abdominal pain upper [Recovered/Resolved]
